FAERS Safety Report 5451097-1 (Version None)
Quarter: 2007Q3

REPORT INFORMATION
  Report Type: 
  Country: None (occurrence: None)
  Receive Date: 20070911
  Receipt Date: 20070828
  Transmission Date: 20080115
  Serious: Yes (Hospitalization)
  Sender: FDA-Public Use
  Company Number: E3810-01119-CLI-JP

PATIENT
  Age: 78 Year
  Sex: Female
  Weight: 35 kg

DRUGS (9)
  1. E3810 (RABEPRAZOLE) [Suspect]
     Indication: GASTRIC ULCER
     Dosage: 20 MG, 2 IN 1 D, ORAL; 10 MG, 1 IN 1 D, ORAL
     Route: 048
     Dates: start: 20070702, end: 20070710
  2. E3810 (RABEPRAZOLE) [Suspect]
     Indication: HELICOBACTER INFECTION
     Dosage: 20 MG, 2 IN 1 D, ORAL; 10 MG, 1 IN 1 D, ORAL
     Route: 048
     Dates: start: 20070702, end: 20070710
  3. E3810 (RABEPRAZOLE) [Suspect]
     Indication: GASTRIC ULCER
     Dosage: 20 MG, 2 IN 1 D, ORAL; 10 MG, 1 IN 1 D, ORAL
     Route: 048
     Dates: start: 20070710, end: 20070713
  4. E3810 (RABEPRAZOLE) [Suspect]
     Indication: HELICOBACTER INFECTION
     Dosage: 20 MG, 2 IN 1 D, ORAL; 10 MG, 1 IN 1 D, ORAL
     Route: 048
     Dates: start: 20070710, end: 20070713
  5. AMOXICILLIN [Suspect]
     Indication: HELICOBACTER INFECTION
     Dosage: 1500 MG, 2 IN 1 D, ORAL
     Route: 048
     Dates: start: 20070710, end: 20070713
  6. CLARITHROMYCIN [Suspect]
     Indication: HELICOBACTER INFECTION
     Dosage: 1500 MG, 2 IN 1 D, ORAL
     Route: 048
     Dates: start: 20070710, end: 20070713
  7. MAGMITT    (MAGNESSIUM OXIDE) [Concomitant]
  8. OSTELUC               (ETODOLAC) [Concomitant]
  9. MARZULENE S          (MARZULENE S) [Concomitant]

REACTIONS (1)
  - HYPERKALAEMIA [None]
